FAERS Safety Report 22878218 (Version 3)
Quarter: 2024Q1

REPORT INFORMATION
  Report Type: Spontaneous
  Country: JP (occurrence: JP)
  Receive Date: 20230829
  Receipt Date: 20240206
  Transmission Date: 20240410
  Serious: Yes (Other)
  Sender: FDA-Public Use
  Company Number: JP-MLMSERVICE-20230817-4486974-1

PATIENT
  Age: 55 Year
  Sex: Male

DRUGS (7)
  1. METHYLPREDNISOLONE SODIUM SUCCINATE [Suspect]
     Active Substance: METHYLPREDNISOLONE SODIUM SUCCINATE
     Indication: Vasculitis
     Dosage: 80 MG, DAILY
     Route: 042
     Dates: start: 2016
  2. BETAMETHASONE [Suspect]
     Active Substance: BETAMETHASONE\BETAMETHASONE DIPROPIONATE
     Indication: Vasculitis
     Dosage: LONG-TERM, MODERATE-DOSE, ORAL BETAMETHASONE }3-4 MG/DAY
     Route: 048
     Dates: start: 2016
  3. PREDNISOLONE [Concomitant]
     Active Substance: PREDNISOLONE
     Indication: Acute febrile neutrophilic dermatosis
     Dosage: GLUCOCORTICOID TAPERING
     Route: 048
     Dates: start: 2014, end: 2014
  4. PREDNISOLONE [Concomitant]
     Active Substance: PREDNISOLONE
     Indication: Haemophagocytic lymphohistiocytosis
     Dosage: HIGH-DOSE
     Route: 048
     Dates: start: 2014, end: 2014
  5. PREDNISOLONE [Concomitant]
     Active Substance: PREDNISOLONE
     Dosage: 20 MG, 1X/DAY
     Route: 048
     Dates: start: 2014
  6. TACROLIMUS [Concomitant]
     Active Substance: TACROLIMUS
     Indication: Rheumatoid arthritis
     Dosage: UNK
     Dates: start: 2014
  7. TACROLIMUS [Concomitant]
     Active Substance: TACROLIMUS
     Indication: Acute febrile neutrophilic dermatosis

REACTIONS (4)
  - Necrotising soft tissue infection [Unknown]
  - Herpes zoster disseminated [Unknown]
  - Osteoporotic fracture [Unknown]
  - Myopathy [Unknown]

NARRATIVE: CASE EVENT DATE: 20160101
